FAERS Safety Report 8884991 (Version 1)
Quarter: 2012Q4

REPORT INFORMATION
  Report Type: 
  Country: GB (occurrence: GB)
  Receive Date: 20121105
  Receipt Date: 20121105
  Transmission Date: 20130627
  Serious: Yes (Other)
  Sender: FDA-Public Use
  Company Number: GB-BIOGENIDEC-2012BI048352

PATIENT
  Sex: Female

DRUGS (1)
  1. TYSABRI [Suspect]
     Indication: PRODUCT USED FOR UNKNOWN INDICATION

REACTIONS (6)
  - Antiphospholipid syndrome [Unknown]
  - Road traffic accident [Unknown]
  - Cerebrovascular accident [Unknown]
  - Skin disorder [Unknown]
  - Arthropathy [Unknown]
  - Neurological symptom [Unknown]
